FAERS Safety Report 9206939 (Version 2)
Quarter: 2013Q4

REPORT INFORMATION
  Report Type: Spontaneous
  Country: US (occurrence: US)
  Receive Date: 20130403
  Receipt Date: 20131125
  Transmission Date: 20140711
  Serious: Yes (Other)
  Sender: FDA-Public Use
  Company Number: US-BAYER-2013-041234

PATIENT
  Age: 30 Year
  Sex: Female
  Weight: 92.06 kg

DRUGS (6)
  1. YAZ [Suspect]
     Indication: ACNE
  2. YASMIN [Suspect]
     Indication: CONTRACEPTION
  3. OCELLA [Suspect]
  4. NIFEDIPINE [Concomitant]
     Dosage: 30 MG, UNK
  5. TRIAMTERENE AND HYDROCHLOROTHIAZID [Concomitant]
     Dosage: 37.5 MG, UNK
  6. POTASSIUM CHLORIDE [Concomitant]
     Dosage: 20 MEQ, UNK

REACTIONS (6)
  - Cholecystitis [None]
  - Biliary dyskinesia [None]
  - Cholecystitis chronic [None]
  - Pain [None]
  - Injury [None]
  - Pain [None]
